FAERS Safety Report 9432705 (Version 4)
Quarter: 2013Q4

REPORT INFORMATION
  Report Type: Spontaneous
  Country: US (occurrence: US)
  Receive Date: 20130731
  Receipt Date: 20131016
  Transmission Date: 20140711
  Serious: Yes (Other)
  Sender: FDA-Public Use
  Company Number: US-PFIZER INC-2013220325

PATIENT
  Age: 51 Year
  Sex: Female
  Weight: 81.63 kg

DRUGS (7)
  1. SUTENT [Suspect]
     Dosage: 37.5 MG, UNK
     Dates: start: 20130506
  2. SUTENT [Suspect]
     Dosage: 25 MG, CYCLIC
     Dates: start: 20130916
  3. CREON [Concomitant]
     Dosage: UNK
  4. SANDOSTATIN [Concomitant]
     Dosage: UNK, EVERY 28 DAYS
  5. ZOLOFT [Concomitant]
     Dosage: UNK
  6. LEVOTHYROXINE [Concomitant]
     Dosage: UNK
  7. IMODIUM A-D [Concomitant]
     Dosage: UNK

REACTIONS (15)
  - Haemorrhage [Unknown]
  - Diarrhoea [Not Recovered/Not Resolved]
  - Stomatitis [Unknown]
  - Dyspepsia [Unknown]
  - Dysgeusia [Unknown]
  - Epistaxis [Unknown]
  - Alopecia [Unknown]
  - Hair colour changes [Unknown]
  - Eyelid oedema [Recovering/Resolving]
  - Hair colour changes [Unknown]
  - Flatulence [Unknown]
  - Platelet count decreased [Unknown]
  - White blood cell count decreased [Unknown]
  - Red blood cell count decreased [Unknown]
  - Haematocrit decreased [Unknown]
